FAERS Safety Report 5217165-4 (Version None)
Quarter: 2007Q1

REPORT INFORMATION
  Report Type: 
  Country: None (occurrence: None)
  Receive Date: 20070123
  Receipt Date: 20070123
  Transmission Date: 20070707
  Serious: Yes (Other)
  Sender: FDA-Public Use
  Company Number: None

PATIENT
  Age: 71 Year
  Sex: Female
  Weight: 54.4316 kg

DRUGS (1)
  1. LISINOPRIL AND HYDROCHLOROTHIAZIDE [Suspect]
     Indication: HYPERTENSION
     Dosage: 2 DAILY  ORAL
     Route: 048

REACTIONS (2)
  - BLOOD PRESSURE INCREASED [None]
  - PHARMACEUTICAL PRODUCT COMPLAINT [None]
